FAERS Safety Report 8078663-1 (Version None)
Quarter: 2012Q1

REPORT INFORMATION
  Report Type: 
  Country: None (occurrence: None)
  Receive Date: 20120124
  Receipt Date: 20120116
  Transmission Date: 20120608
  Serious: Yes (Other)
  Sender: FDA-Public Use
  Company Number: AUR-APL-2012-00548

PATIENT
  Age: 10 Year
  Sex: Female

DRUGS (3)
  1. METHYLPHENIDATE [Concomitant]
  2. CITALOPRAM HYDROBROMIDE [Suspect]
     Indication: MAJOR DEPRESSION
     Dosage: (10 MG,1 D)
  3. CITALOPRAM HYDROBROMIDE [Suspect]
     Indication: ATTENTION DEFICIT/HYPERACTIVITY DISORDER
     Dosage: (10 MG,1 D)

REACTIONS (11)
  - MANIA [None]
  - IMPAIRED SELF-CARE [None]
  - SCHIZOAFFECTIVE DISORDER BIPOLAR TYPE [None]
  - PSYCHOTIC DISORDER [None]
  - HALLUCINATION, AUDITORY [None]
  - DEPRESSED MOOD [None]
  - PSYCHOMOTOR HYPERACTIVITY [None]
  - SUBSTANCE ABUSER [None]
  - DELUSION [None]
  - BORDERLINE PERSONALITY DISORDER [None]
  - VICTIM OF SEXUAL ABUSE [None]
